FAERS Safety Report 12329221 (Version 1)
Quarter: 2016Q2

REPORT INFORMATION
  Report Type: Spontaneous
  Country: US (occurrence: US)
  Receive Date: 20160503
  Receipt Date: 20160503
  Transmission Date: 20160815
  Serious: Yes (Life-Threatening)
  Sender: FDA-Public Use
  Company Number: US-STANDARD HOMEOPATHIC COMPANY-1051362

PATIENT
  Age: 9 Month
  Sex: Male

DRUGS (2)
  1. HYLANDS BABY CALMING TABLETS [Suspect]
     Active Substance: HOMEOPATHICS
     Indication: INSOMNIA
     Route: 048
     Dates: start: 20160418, end: 20160418
  2. HYLANDS BABY CALMING TABLETS [Suspect]
     Active Substance: HOMEOPATHICS
     Indication: IRRITABILITY
     Route: 048
     Dates: start: 20160418, end: 20160418

REACTIONS (11)
  - Eye haemorrhage [None]
  - Choking [None]
  - Somnolence [None]
  - Seizure [None]
  - Respiratory arrest [Unknown]
  - Musculoskeletal stiffness [None]
  - Screaming [None]
  - Unresponsive to stimuli [Unknown]
  - Aspiration [None]
  - Muscle twitching [None]
  - Reaction to drug excipients [None]

NARRATIVE: CASE EVENT DATE: 20160418
